FAERS Safety Report 6441736-0 (Version None)
Quarter: 2009Q4

REPORT INFORMATION
  Report Type: 
  Country: None (occurrence: None)
  Receive Date: 20091116
  Receipt Date: 20091104
  Transmission Date: 20100525
  Serious: Yes (Hospitalization)
  Sender: FDA-Public Use
  Company Number: FR-PFIZER INC-2009293025

PATIENT
  Age: 14 Year
  Sex: Male

DRUGS (3)
  1. SOMATROPIN [Suspect]
     Indication: HYPOPITUITARISM
     Dosage: 16.2 MG, WEEKLY
     Dates: start: 20060213
  2. LEVOTHYROXINE SODIUM [Concomitant]
     Dosage: UNK
     Dates: start: 20080101
  3. DESMOPRESSIN ACETATE [Concomitant]
     Dosage: UNK
     Dates: start: 20070701

REACTIONS (1)
  - MEDULLOBLASTOMA RECURRENT [None]
